FAERS Safety Report 16900888 (Version 1)
Quarter: 2019Q4

REPORT INFORMATION
  Report Type: Spontaneous
  Country: US (occurrence: US)
  Receive Date: 20191009
  Receipt Date: 20191009
  Transmission Date: 20200122
  Serious: No
  Sender: FDA-Public Use
  Company Number: US-ALKERMES INC.-ALK-2019-000304

PATIENT
  Age: 24 Year
  Sex: Male
  Weight: 113.38 kg

DRUGS (1)
  1. ARISTADA [Suspect]
     Active Substance: ARIPIPRAZOLE LAUROXIL
     Indication: BIPOLAR II DISORDER
     Dosage: 662 MG, QMO
     Route: 030
     Dates: start: 20181108

REACTIONS (3)
  - Off label use [Recovered/Resolved]
  - Irritability [Recovered/Resolved]
  - Fluid intake reduced [Recovered/Resolved]

NARRATIVE: CASE EVENT DATE: 20181108
